FAERS Safety Report 6228769-4 (Version None)
Quarter: 2009Q2

REPORT INFORMATION
  Report Type: 
  Country: None (occurrence: None)
  Receive Date: 20090615
  Receipt Date: 20090609
  Transmission Date: 20091009
  Serious: No
  Sender: FDA-Public Use
  Company Number: US-JNJFOC-20090603572

PATIENT
  Sex: Female
  Weight: 48.54 kg

DRUGS (2)
  1. DURAGESIC-100 [Suspect]
     Indication: BONE PAIN
     Route: 062
  2. VALIUM [Concomitant]
     Indication: MYALGIA
     Route: 048

REACTIONS (3)
  - BONE PAIN [None]
  - DEVICE ADHESION ISSUE [None]
  - WRONG TECHNIQUE IN DRUG USAGE PROCESS [None]
